APPROVED DRUG PRODUCT: DOXEPIN HYDROCHLORIDE
Active Ingredient: DOXEPIN HYDROCHLORIDE
Strength: EQ 10MG BASE/ML
Dosage Form/Route: CONCENTRATE;ORAL
Application: A074721 | Product #001
Applicant: LANNETT CO INC
Approved: Dec 29, 1998 | RLD: No | RS: Yes | Type: RX